FAERS Safety Report 5603416-0 (Version None)
Quarter: 2008Q1

REPORT INFORMATION
  Report Type: 
  Country: None (occurrence: None)
  Receive Date: 20080122
  Receipt Date: 20080110
  Transmission Date: 20080703
  Serious: Yes (Death)
  Sender: FDA-Public Use
  Company Number: JPI-P-002867

PATIENT
  Age: 64 Year
  Sex: Female

DRUGS (6)
  1. XYREM [Suspect]
     Indication: FIBROMYALGIA
     Dosage: 4.5 GM (2.25 GM, 2 IN 1 D), ORAL; 4.5 GM (2.25 GM, 2 IN 1 D), ORAL; 6 GM (3 GM, 2 IN 1 D), ORAL;
     Route: 048
     Dates: start: 20070101, end: 20070101
  2. XYREM [Suspect]
     Indication: FIBROMYALGIA
     Dosage: 4.5 GM (2.25 GM, 2 IN 1 D), ORAL; 4.5 GM (2.25 GM, 2 IN 1 D), ORAL; 6 GM (3 GM, 2 IN 1 D), ORAL;
     Route: 048
     Dates: start: 20070907, end: 20070901
  3. XYREM [Suspect]
     Indication: FIBROMYALGIA
     Dosage: 4.5 GM (2.25 GM, 2 IN 1 D), ORAL; 4.5 GM (2.25 GM, 2 IN 1 D), ORAL; 6 GM (3 GM, 2 IN 1 D), ORAL;
     Route: 048
     Dates: start: 20071005, end: 20071001
  4. TRAMADOL HCL [Concomitant]
  5. OXYCONTIN [Concomitant]
  6. ACETAMINOPHEN AND ASPIRIN W/CAFFEINE (THOMAPYRIN N) [Concomitant]

REACTIONS (7)
  - AMNESIA [None]
  - DISORIENTATION [None]
  - DIZZINESS [None]
  - FEELING ABNORMAL [None]
  - HEADACHE [None]
  - NAUSEA [None]
  - SOMNOLENCE [None]
